FAERS Safety Report 17431771 (Version 1)
Quarter: 2020Q1

REPORT INFORMATION
  Report Type: Spontaneous
  Country: US (occurrence: US)
  Receive Date: 20200218
  Receipt Date: 20200218
  Transmission Date: 20200409
  Serious: No
  Sender: FDA-Public Use
  Company Number: US-BAYER-2020-017357

PATIENT
  Age: 27 Year
  Sex: Female

DRUGS (1)
  1. LEVONORGESTREL (LCS, 12?G/D, 28X30) [Suspect]
     Active Substance: LEVONORGESTREL
     Indication: CONTRACEPTION
     Dosage: 14?G PER DAY, CONT
     Route: 015
     Dates: start: 20180118

REACTIONS (1)
  - Adverse reaction [None]
